FAERS Safety Report 18971145 (Version 2)
Quarter: 2023Q2

REPORT INFORMATION
  Report Type: Report from Study
  Country: DE (occurrence: DE)
  Receive Date: 20210305
  Receipt Date: 20230517
  Transmission Date: 20230721
  Serious: Yes (Death, Life-Threatening, Hospitalization)
  Sender: FDA-Public Use
  Company Number: None

PATIENT
  Age: 50 Year
  Sex: Male
  Weight: 118 kg

DRUGS (17)
  1. METHOTREXATE [Suspect]
     Active Substance: METHOTREXATE
     Indication: Product used for unknown indication
     Route: 065
  2. COSENTYX [Suspect]
     Active Substance: SECUKINUMAB
     Indication: Psoriasis
     Dosage: 300 MG
     Route: 065
     Dates: start: 20150610, end: 20151201
  3. GUSELKUMAB [Suspect]
     Active Substance: GUSELKUMAB
     Indication: Psoriasis
     Dosage: 200 MG
     Route: 058
     Dates: start: 20181026
  4. EISEN [Concomitant]
     Indication: Anaemia
     Dosage: 100 MG, 1X/DAY (1-0-0)
     Route: 065
     Dates: start: 20181107
  5. SPIRONOLACTONE [Concomitant]
     Active Substance: SPIRONOLACTONE
     Indication: Hypertension
     Dosage: 50 MG, 2X/DAY (1-1-0)
     Route: 065
     Dates: start: 20181107
  6. RAMIPRIL [Concomitant]
     Active Substance: RAMIPRIL
     Indication: Hypertension
     Dosage: 2.5 MG, 1X/DAY (1-0-0)
     Route: 065
     Dates: start: 20181107
  7. TORSEMIDE [Concomitant]
     Active Substance: TORSEMIDE
     Indication: Hypertension
     Dosage: 10 MG, 1X/DAY (1-0-0)
     Route: 065
     Dates: start: 20181107
  8. FOLIC ACID [Concomitant]
     Active Substance: FOLIC ACID
     Indication: Folate deficiency
     Dosage: 5 MG, 1X/DAY (1-0-0)
     Route: 065
     Dates: start: 20181107
  9. RIFAXIMIN [Concomitant]
     Active Substance: RIFAXIMIN
     Indication: Hepatic cirrhosis
     Dosage: 550 MG, 2X/DAY (1-0-1)
     Route: 065
     Dates: start: 20181107
  10. PANTOPRAZOLE [Concomitant]
     Active Substance: PANTOPRAZOLE
     Indication: Dyspepsia
  11. INSULIN NOS [Concomitant]
     Active Substance: INSULIN NOS
     Indication: Type 2 diabetes mellitus
  12. CLEMASTINE FUMARATE [Concomitant]
     Active Substance: CLEMASTINE FUMARATE
     Indication: Pruritus
  13. LACTULOSE [Concomitant]
     Active Substance: LACTULOSE
     Indication: Liver disorder
  14. FERRO-SANOL DUODENAL [Concomitant]
     Active Substance: FERROUS GLYCINE SULFATE
     Indication: Anaemia
  15. COSENTYX [Suspect]
     Active Substance: SECUKINUMAB
     Indication: Psoriasis
     Dosage: 300 MG
     Route: 065
     Dates: start: 20180207, end: 201807
  16. COSENTYX [Suspect]
     Active Substance: SECUKINUMAB
     Indication: Psoriasis
     Dosage: 300 MG
     Route: 065
     Dates: start: 20180702, end: 20180715
  17. GUSELKUMAB [Suspect]
     Active Substance: GUSELKUMAB
     Indication: Psoriasis
     Dosage: 200 MG
     Route: 058
     Dates: start: 20180731

REACTIONS (16)
  - Colitis ischaemic [Fatal]
  - Drug ineffective [Unknown]
  - Megacolon [Fatal]
  - General physical health deterioration [Fatal]
  - Circulatory collapse [Fatal]
  - Dyspnoea [Fatal]
  - Sepsis [Fatal]
  - Septic shock [Fatal]
  - Pain [Unknown]
  - Somnolence [Fatal]
  - Depression [Unknown]
  - Hyponatraemia [Fatal]
  - Lactic acidosis [Fatal]
  - Ketoacidosis [Fatal]
  - Acute abdomen [Fatal]
  - Hepatic cirrhosis [Fatal]

NARRATIVE: CASE EVENT DATE: 20180101
